FAERS Safety Report 8059090-X (Version None)
Quarter: 2012Q1

REPORT INFORMATION
  Report Type: 
  Country: None (occurrence: None)
  Receive Date: 20120120
  Receipt Date: 20111223
  Transmission Date: 20120608
  Serious: Yes (Hospitalization, Other)
  Sender: FDA-Public Use
  Company Number: US-BAYER-2011-034715

PATIENT
  Sex: Female
  Weight: 76.916 kg

DRUGS (5)
  1. LEVOTHYROXINE SODIUM [Concomitant]
     Indication: HYPOTHYROIDISM
     Dosage: UNK
     Dates: start: 20060101
  2. YAZ [Suspect]
     Indication: CONTRACEPTION
     Dosage: 1 DF, QD
     Route: 048
     Dates: start: 20061101, end: 20091101
  3. SYNTHROID [Concomitant]
     Dosage: 75 MCG/24HR, QD
     Route: 048
     Dates: start: 20091101
  4. YAZ [Suspect]
     Indication: HEADACHE
  5. VITAMIN D [Concomitant]
     Dosage: UNK
     Dates: start: 20090819

REACTIONS (7)
  - EMOTIONAL DISTRESS [None]
  - PULMONARY INFARCTION [None]
  - PAIN [None]
  - ANHEDONIA [None]
  - PULMONARY EMBOLISM [None]
  - INJURY [None]
  - ANXIETY [None]
